FAERS Safety Report 9168513 (Version 2)
Quarter: 2013Q2

REPORT INFORMATION
  Report Type: Spontaneous
  Country: US (occurrence: US)
  Receive Date: 20130318
  Receipt Date: 20130417
  Transmission Date: 20140414
  Serious: Yes (Hospitalization)
  Sender: FDA-Public Use
  Company Number: US-BAYER-2013-030167

PATIENT
  Age: 29 Year
  Sex: Female
  Weight: 121 kg

DRUGS (4)
  1. YASMIN [Suspect]
  2. INDOCIN [INDOMETACIN] [Concomitant]
     Dosage: UNK
     Route: 048
     Dates: start: 20070405, end: 20070910
  3. PREVACID [Concomitant]
     Dosage: 30 MG, UNK
     Route: 048
     Dates: start: 20070405, end: 20071115
  4. YAZ [Suspect]

REACTIONS (4)
  - Deep vein thrombosis [None]
  - Pain in extremity [None]
  - Pain [None]
  - Limb discomfort [None]
